FAERS Safety Report 4456064-2 (Version None)
Quarter: 2004Q3

REPORT INFORMATION
  Report Type: 
  Country: None (occurrence: None)
  Receive Date: 20040920
  Receipt Date: 20040907
  Transmission Date: 20050211
  Serious: Yes (Hospitalization)
  Sender: FDA-Public Use
  Company Number: APP200400736

PATIENT
  Sex: Male

DRUGS (3)
  1. FLUOROURACIL INJ [Suspect]
     Dosage: INJECTION
     Dates: start: 20031015, end: 20030101
  2. INTRON A [Suspect]
     Indication: HEPATITIS C
     Dosage: 10 MIU (6 IN 1 WK),TRANSDERMAL
     Route: 062
     Dates: start: 20021219, end: 20030104
  3. REBETOL [Suspect]
     Indication: HEPATITIS C
     Dosage: 800 MG, ORAL
     Route: 048
     Dates: start: 20021219, end: 20030905

REACTIONS (2)
  - BLOOD PRESSURE SYSTOLIC INCREASED [None]
  - BRAIN STEM HAEMORRHAGE [None]
